FAERS Safety Report 4830468-8 (Version None)
Quarter: 2005Q4

REPORT INFORMATION
  Report Type: 
  Country: None (occurrence: None)
  Receive Date: 20051117
  Receipt Date: 20051104
  Transmission Date: 20060501
  Serious: Yes (Death, Hospitalization)
  Sender: FDA-Public Use
  Company Number: FR-ROCHE-423730

PATIENT
  Age: 73 Year
  Sex: Female
  Weight: 50 kg

DRUGS (5)
  1. INTERFERON ALFA-2A [Suspect]
     Route: 058
     Dates: start: 20050606, end: 20051031
  2. BLINDED BEVACIZUMAB [Suspect]
     Route: 042
     Dates: start: 20050606, end: 20051031
  3. SIMVASTATIN [Concomitant]
     Dates: start: 19950615
  4. FORTZAAR [Concomitant]
     Dates: start: 20050615
  5. TRIMETAZIDINE DIHYDROCHLORIDE [Concomitant]

REACTIONS (8)
  - CARDIAC ARREST [None]
  - COMA [None]
  - CONVULSION [None]
  - HAEMOPTYSIS [None]
  - HEART RATE INCREASED [None]
  - PULMONARY HILUM MASS [None]
  - RESPIRATORY DISTRESS [None]
  - RESPIRATORY TRACT HAEMORRHAGE [None]
